FAERS Safety Report 21396592 (Version 1)
Quarter: 2022Q3

REPORT INFORMATION
  Report Type: Spontaneous
  Country: FR (occurrence: FR)
  Receive Date: 20220930
  Receipt Date: 20220930
  Transmission Date: 20221027
  Serious: Yes (Other)
  Sender: FDA-Public Use
  Company Number: FR-ANIPHARMA-2022-FR-000189

PATIENT
  Age: 79 Year
  Sex: Female
  Weight: 69 kg

DRUGS (4)
  1. ANASTROZOLE [Suspect]
     Active Substance: ANASTROZOLE
     Indication: Breast cancer
     Dosage: 1 MG DAILY
     Route: 065
     Dates: start: 202103, end: 202206
  2. SIMVASTATIN [Concomitant]
     Active Substance: SIMVASTATIN
     Dosage: 10 MG DAILY
     Route: 065
     Dates: start: 201903
  3. IRBESARTAN [Concomitant]
     Active Substance: IRBESARTAN
     Dosage: 150 MG DAILY
     Route: 065
     Dates: start: 201904
  4. ERGOCALCIFEROL [Concomitant]
     Active Substance: ERGOCALCIFEROL
     Dosage: 1 DF Q3MO
     Route: 065
     Dates: start: 201711

REACTIONS (1)
  - Polyneuropathy [Not Recovered/Not Resolved]

NARRATIVE: CASE EVENT DATE: 20220101
